FAERS Safety Report 10405090 (Version 5)
Quarter: 2014Q3

REPORT INFORMATION
  Report Type: Spontaneous
  Country: JP (occurrence: JP)
  Receive Date: 20140825
  Receipt Date: 20140923
  Transmission Date: 20150326
  Serious: No
  Sender: FDA-Public Use
  Company Number: JP-BRISTOL-MYERS SQUIBB COMPANY-21309398

PATIENT
  Age: 83 Year
  Sex: Female

DRUGS (2)
  1. BAYASPIRIN [Suspect]
     Active Substance: ASPIRIN
  2. ELIQUIS [Suspect]
     Active Substance: APIXABAN
     Indication: CEREBROVASCULAR ACCIDENT PROPHYLAXIS
     Route: 048
     Dates: start: 20140623

REACTIONS (1)
  - Chronic gastritis [Recovered/Resolved]

NARRATIVE: CASE EVENT DATE: 20140811
